FAERS Safety Report 7740938-0 (Version None)
Quarter: 2011Q3

REPORT INFORMATION
  Report Type: 
  Country: None (occurrence: None)
  Receive Date: 20110909
  Receipt Date: 20110902
  Transmission Date: 20111222
  Serious: Yes (Hospitalization, Other)
  Sender: FDA-Public Use
  Company Number: PHEH2011US03362

PATIENT
  Age: 53 Year
  Sex: Female
  Weight: 102.4 kg

DRUGS (2)
  1. TOBI [Suspect]
     Dosage: 300 MG, BID (28 DAYS ON AND 28 DAYS OFF)
     Dates: start: 20100923
  2. PULMOZYME [Concomitant]

REACTIONS (6)
  - UPPER RESPIRATORY TRACT INFECTION [None]
  - NAUSEA [None]
  - GASTROINTESTINAL DISORDER [None]
  - PNEUMONIA [None]
  - LUNG INFECTION [None]
  - DYSGEUSIA [None]
